FAERS Safety Report 4777273-9 (Version None)
Quarter: 2005Q3

REPORT INFORMATION
  Report Type: 
  Country: None (occurrence: None)
  Receive Date: 20050921
  Receipt Date: 20050908
  Transmission Date: 20060218
  Serious: Yes (Hospitalization)
  Sender: FDA-Public Use
  Company Number: 2005BI004288

PATIENT
  Age: 37 Year
  Sex: Female

DRUGS (2)
  1. AVONEX [Suspect]
     Indication: MULTIPLE SCLEROSIS
     Dosage: 30 UG;QW;IM
  2. AVONEX [Suspect]
     Indication: MULTIPLE SCLEROSIS
     Dosage: 30 UG;QW;IM
     Route: 030

REACTIONS (9)
  - CONDITION AGGRAVATED [None]
  - DRUG HYPERSENSITIVITY [None]
  - HEPATIC ENZYME INCREASED [None]
  - MULTIPLE SCLEROSIS [None]
  - PAIN [None]
  - PRURITUS [None]
  - UPPER RESPIRATORY TRACT INFECTION [None]
  - URINARY RETENTION [None]
  - URINARY TRACT INFECTION [None]
